FAERS Safety Report 8583500-2 (Version None)
Quarter: 2012Q3

REPORT INFORMATION
  Report Type: 
  Country: None (occurrence: None)
  Receive Date: 20120809
  Receipt Date: 20120803
  Transmission Date: 20120928
  Serious: Yes (Hospitalization, Other)
  Sender: FDA-Public Use
  Company Number: JP-ABBOTT-12P-087-0963049-00

PATIENT
  Age: 77 Year
  Sex: Male

DRUGS (8)
  1. LEUPROLIDE ACETATE [Suspect]
     Indication: PROSTATE CANCER
     Route: 058
     Dates: start: 20120117
  2. CANDESARTAN CILEXETIL [Concomitant]
     Indication: HYPERTENSION
     Route: 048
  3. ACETAMINOPHEN [Concomitant]
     Indication: SPINAL COLUMN STENOSIS
  4. FERROUS CITRATE [Concomitant]
     Indication: ANAEMIA
     Route: 048
     Dates: start: 20120713
  5. AMLODIPINE [Concomitant]
     Indication: HYPERTENSION
     Route: 048
  6. LIVALO [Concomitant]
     Indication: DYSLIPIDAEMIA
     Route: 048
  7. LEUPROLIDE ACETATE [Suspect]
     Indication: PROSTATE CANCER
     Route: 058
     Dates: start: 20110726, end: 20111213
  8. ACETAMINOPHEN [Concomitant]
     Indication: SURGERY
     Route: 048
     Dates: start: 20120703

REACTIONS (2)
  - DIABETES MELLITUS [None]
  - PITUITARY TUMOUR BENIGN [None]
